FAERS Safety Report 17291608 (Version 1)
Quarter: 2020Q1

REPORT INFORMATION
  Report Type: Spontaneous
  Country: US (occurrence: US)
  Receive Date: 20200117
  Receipt Date: 20200117
  Transmission Date: 20200409
  Serious: Yes (Disabling)
  Sender: FDA-Public Use
  Company Number: None

PATIENT
  Age: 63 Year
  Sex: Male
  Weight: 108 kg

DRUGS (12)
  1. TYLENOL EXTRA STRENGTH ARTHRITAS [Concomitant]
  2. CELERY ROOT [Concomitant]
  3. MENS 50 PLUS MULTI VITAMIN [Concomitant]
  4. ACYCLOVIR. [Concomitant]
     Active Substance: ACYCLOVIR
  5. TUMERIC EXTRACT CURUMIN C3 COMPLEX [Concomitant]
  6. VITAMIN C [Concomitant]
     Active Substance: ASCORBIC ACID
  7. ELIQUIS [Suspect]
     Active Substance: APIXABAN
     Indication: THROMBOSIS
     Dosage: ?          QUANTITY:14 CAPSULE(S);?
     Route: 048
     Dates: start: 20190615, end: 20200106
  8. TRAMADOL. [Concomitant]
     Active Substance: TRAMADOL
  9. ZINC. [Concomitant]
     Active Substance: ZINC
  10. HYALURONIC ACID [Concomitant]
     Active Substance: HYALURONIC ACID
  11. FISH OMEGA OIL 3 EPA DHA [Concomitant]
  12. GINGER ROOT [Concomitant]
     Active Substance: GINGER

REACTIONS (2)
  - Gait disturbance [None]
  - Arthralgia [None]

NARRATIVE: CASE EVENT DATE: 20190708
